FAERS Safety Report 19138381 (Version 3)
Quarter: 2021Q4

REPORT INFORMATION
  Report Type: Report from Study
  Country: NL (occurrence: NL)
  Receive Date: 20210414
  Receipt Date: 20211219
  Transmission Date: 20220303
  Serious: Yes (Other)
  Sender: FDA-Public Use
  Company Number: NL-UCBSA-2021014103

PATIENT
  Age: 62 Year
  Sex: Female

DRUGS (3)
  1. EVENITY [Suspect]
     Active Substance: ROMOSOZUMAB-AQQG
     Indication: Osteoporosis
     Dosage: 210 MILLIGRAM, QMO (MONTHLY (QM))
     Route: 058
     Dates: start: 20210312, end: 2021
  2. BENRALIZUMAB [Concomitant]
     Active Substance: BENRALIZUMAB
     Indication: Asthma
     Dosage: UNK
  3. ACETAMINOPHEN [Concomitant]
     Active Substance: ACETAMINOPHEN
     Indication: Arthralgia
     Dosage: UNK

REACTIONS (6)
  - Dyspnoea [Not Recovered/Not Resolved]
  - Influenza like illness [Recovering/Resolving]
  - Arthralgia [Not Recovered/Not Resolved]
  - Device issue [Unknown]
  - Asthma [Not Recovered/Not Resolved]
  - Fatigue [Not Recovered/Not Resolved]

NARRATIVE: CASE EVENT DATE: 20210312
